FAERS Safety Report 9520137 (Version 3)
Quarter: 2013Q3

REPORT INFORMATION
  Report Type: Spontaneous
  Country: IT (occurrence: IT)
  Receive Date: 20130912
  Receipt Date: 20130925
  Transmission Date: 20140515
  Serious: Yes (Death, Life-Threatening, Hospitalization)
  Sender: FDA-Public Use
  Company Number: IT-BAYER-2013-110248

PATIENT
  Age: 19 Year
  Sex: Male

DRUGS (1)
  1. ASPIRINA [Suspect]
     Indication: HEADACHE
     Dosage: UNK
     Dates: start: 20130910

REACTIONS (6)
  - Anaphylactic shock [Fatal]
  - Cardiac arrest [Fatal]
  - Brain injury [Fatal]
  - Dyspnoea [Fatal]
  - Coma [Fatal]
  - Malaise [Fatal]
